FAERS Safety Report 5151714-X (Version None)
Quarter: 2006Q4

REPORT INFORMATION
  Report Type: 
  Country: None (occurrence: None)
  Receive Date: 20061115
  Receipt Date: 20061110
  Transmission Date: 20070319
  Serious: Yes (Death)
  Sender: FDA-Public Use
  Company Number: FR-BRISTOL-MYERS SQUIBB COMPANY-13574454

PATIENT
  Age: 36 Year
  Sex: Female

DRUGS (1)
  1. ZERIT [Suspect]
     Route: 048

REACTIONS (6)
  - DEATH [None]
  - LACTIC ACIDOSIS [None]
  - MITOCHONDRIAL CYTOPATHY [None]
  - MULTI-ORGAN FAILURE [None]
  - PANCREATITIS [None]
  - SHOCK [None]
